FAERS Safety Report 14870674 (Version 1)
Quarter: 2018Q2

REPORT INFORMATION
  Report Type: Spontaneous
  Country: US (occurrence: US)
  Receive Date: 20180423
  Receipt Date: 20180423
  Transmission Date: 20180711
  Serious: Yes (Other)
  Sender: FDA-Public Use
  Company Number: None

PATIENT
  Age: 59 Year
  Sex: Female
  Weight: 99.79 kg

DRUGS (1)
  1. CEFEPIME [Suspect]
     Active Substance: CEFEPIME HYDROCHLORIDE
     Indication: SINUSITIS
     Dosage: ?          OTHER ROUTE:IV PUSH?
     Route: 042
     Dates: start: 20180413, end: 20180418

REACTIONS (1)
  - Tachycardia [None]

NARRATIVE: CASE EVENT DATE: 20180416
